FAERS Safety Report 20233213 (Version 1)
Quarter: 2021Q4

REPORT INFORMATION
  Report Type: Spontaneous
  Country: FR (occurrence: FR)
  Receive Date: 20211227
  Receipt Date: 20211227
  Transmission Date: 20220303
  Serious: Yes (Hospitalization, Other)
  Sender: FDA-Public Use
  Company Number: None

PATIENT
  Age: 19 Year
  Sex: Female
  Weight: 33 kg

DRUGS (11)
  1. PRAVASTATIN [Suspect]
     Active Substance: PRAVASTATIN
     Indication: Product used for unknown indication
     Dosage: PRAVASTATINE SODIQUE , 20 MG
     Route: 048
     Dates: start: 2015
  2. ESOMEPRAZOLE [Suspect]
     Active Substance: ESOMEPRAZOLE
     Indication: Product used for unknown indication
     Dosage: 20 MG
     Route: 048
     Dates: start: 2013
  3. AZITHROMYCIN [Suspect]
     Active Substance: AZITHROMYCIN
     Indication: Infection prophylaxis
     Dosage: 250MG * 3 / WEEK , UNIT DOSE ; 250 MG
     Route: 048
     Dates: start: 201303
  4. HUMALOG [Suspect]
     Active Substance: INSULIN LISPRO
     Indication: Insulin-requiring type 2 diabetes mellitus
     Route: 058
     Dates: start: 201303
  5. CREON [Suspect]
     Active Substance: PANCRELIPASE AMYLASE\PANCRELIPASE LIPASE\PANCRELIPASE PROTEASE
     Indication: Cystic fibrosis
     Dosage: TO ADAPT ACCORDING TO THE MEALS,GASTRO-RESISTANT GRANULES IN HARD CAPSULES
     Route: 048
     Dates: start: 201303
  6. PROGRAF [Suspect]
     Active Substance: TACROLIMUS
     Indication: Prophylaxis against transplant rejection
     Dosage: 6 MILLIGRAM DAILY; 3 MG * 2 / DAY
     Route: 048
     Dates: start: 2013
  7. BACTRIM [Suspect]
     Active Substance: SULFAMETHOXAZOLE\TRIMETHOPRIM
     Indication: Infection prophylaxis
     Dosage: 3 WEEKS , UNIT DOSE : 3 DF
     Route: 048
     Dates: start: 2013
  8. AFINITOR [Suspect]
     Active Substance: EVEROLIMUS
     Indication: Prophylaxis against transplant rejection
     Dosage: 5 MILLIGRAM DAILY; 2.5 MG * 2 / DAY
     Route: 048
     Dates: start: 2013
  9. PIPERACILLIN SODIUM\TAZOBACTAM SODIUM [Suspect]
     Active Substance: PIPERACILLIN SODIUM\TAZOBACTAM SODIUM
     Indication: Bacterial disease carrier
     Dosage: 4G * 3 / DAY, STRENGTH : 4 G / 500 MG , UNIT DOSE : 3 DF
     Route: 041
     Dates: start: 20200109, end: 20200120
  10. CIPROFLOXACIN [Suspect]
     Active Substance: CIPROFLOXACIN
     Indication: Bacterial disease carrier
     Dosage: 500 MILLIGRAM DAILY; 250 MG * 2 / DAY
     Route: 048
     Dates: start: 20200109, end: 20200120
  11. CERTICAN [Suspect]
     Active Substance: EVEROLIMUS
     Indication: Prophylaxis against transplant rejection
     Dosage: 1 MILLIGRAM DAILY; 0.5 MG * 2 / DAY
     Route: 048
     Dates: start: 2013

REACTIONS (1)
  - Abortion spontaneous [Recovered/Resolved with Sequelae]

NARRATIVE: CASE EVENT DATE: 20200118
